FAERS Safety Report 8620016-9 (Version None)
Quarter: 2012Q3

REPORT INFORMATION
  Report Type: 
  Country: None (occurrence: None)
  Receive Date: 20120824
  Receipt Date: 20120819
  Transmission Date: 20120928
  Serious: Yes (Other)
  Sender: FDA-Public Use
  Company Number: PHHY2012FR070139

PATIENT
  Sex: Female
  Weight: 12 kg

DRUGS (1)
  1. ILARIS [Suspect]
     Dosage: 12 MG/KG, (150 MG)
     Dates: start: 20120808

REACTIONS (1)
  - HISTIOCYTOSIS HAEMATOPHAGIC [None]
